FAERS Safety Report 4469641-X (Version None)
Quarter: 2004Q4

REPORT INFORMATION
  Report Type: 
  Country: None (occurrence: None)
  Receive Date: 20041008
  Receipt Date: 20040804
  Transmission Date: 20050328
  Serious: Yes (Other)
  Sender: FDA-Public Use
  Company Number: US-MERCK-0408USA00417

PATIENT
  Age: 15 Year
  Sex: Male
  Weight: 78 kg

DRUGS (6)
  1. [THERAPY UNSPECIFIED] [Concomitant]
     Route: 065
  2. DEPAKOTE [Concomitant]
     Indication: EPILEPSY
     Route: 065
  3. ADVAIR DISKUS 100/50 [Concomitant]
     Indication: ASTHMA
     Route: 065
  4. SINGULAIR [Suspect]
     Indication: ASTHMA
     Route: 065
     Dates: start: 20020201
  5. SINGULAIR [Suspect]
     Route: 065
     Dates: start: 20010101, end: 20020201
  6. MAXAIR [Suspect]
     Route: 065
     Dates: start: 20040101

REACTIONS (4)
  - CARDIAC DISORDER [None]
  - DEHYDRATION [None]
  - LOSS OF CONSCIOUSNESS [None]
  - WEIGHT DECREASED [None]
